FAERS Safety Report 24318747 (Version 1)
Quarter: 2024Q3

REPORT INFORMATION
  Report Type: Report from Study
  Country: US (occurrence: US)
  Receive Date: 20240913
  Receipt Date: 20240913
  Transmission Date: 20241017
  Serious: No
  Sender: SANDOZ
  Company Number: US-SANDOZ-SDZ2024US071990

PATIENT
  Sex: Male

DRUGS (2)
  1. OMNITROPE [Suspect]
     Active Substance: SOMATROPIN
     Indication: Short stature
     Dosage: 1 MG QD
     Route: 058
     Dates: start: 20240803
  2. OMNITROPE [Suspect]
     Active Substance: SOMATROPIN
     Indication: Short stature
     Dosage: 1 MG QD
     Route: 058
     Dates: start: 20240803

REACTIONS (5)
  - Capillary fragility [Unknown]
  - Headache [Unknown]
  - Administration site bruise [Unknown]
  - Product storage error [Unknown]
  - Product temperature excursion issue [Unknown]
